FAERS Safety Report 6724846-X (Version None)
Quarter: 2010Q2

REPORT INFORMATION
  Report Type: 
  Country: None (occurrence: None)
  Receive Date: 20100513
  Receipt Date: 20100513
  Transmission Date: 20101027
  Serious: Yes (Other)
  Sender: FDA-Public Use
  Company Number: None

PATIENT
  Sex: Female
  Weight: 49.8957 kg

DRUGS (2)
  1. WELLBUTRIN [Suspect]
     Indication: ATTENTION DEFICIT/HYPERACTIVITY DISORDER
     Dosage: 300 MG ONCE QD PO
     Route: 048
     Dates: start: 20080101
  2. WELLBUTRIN [Suspect]
     Indication: DEPRESSION
     Dosage: 300 MG ONCE QD PO
     Route: 048
     Dates: start: 20080101

REACTIONS (5)
  - ANXIETY [None]
  - NAUSEA [None]
  - PRODUCT SUBSTITUTION ISSUE [None]
  - TREMOR [None]
  - VOMITING [None]
